FAERS Safety Report 7583871-X (Version None)
Quarter: 2011Q2

REPORT INFORMATION
  Report Type: 
  Country: None (occurrence: None)
  Receive Date: 20110628
  Receipt Date: 20110628
  Transmission Date: 20111010
  Serious: No
  Sender: FDA-Public Use
  Company Number: None

PATIENT

DRUGS (2)
  1. LAMOTRIGINE [Suspect]
  2. TOPIRAMATE [Suspect]

REACTIONS (9)
  - MEDICATION ERROR [None]
  - DRUG DISPENSING ERROR [None]
  - FATIGUE [None]
  - ABNORMAL BEHAVIOUR [None]
  - CONVULSION [None]
  - DROOLING [None]
  - GAIT DISTURBANCE [None]
  - SPEECH DISORDER [None]
  - WRONG DRUG ADMINISTERED [None]
